FAERS Safety Report 7834597-6 (Version None)
Quarter: 2011Q4

REPORT INFORMATION
  Report Type: 
  Country: None (occurrence: None)
  Receive Date: 20111024
  Receipt Date: 20111012
  Transmission Date: 20120403
  Serious: Yes (Hospitalization)
  Sender: FDA-Public Use
  Company Number: JP-SANOFI-AVENTIS-2011SA068771

PATIENT
  Age: 80 Year
  Sex: Male

DRUGS (2)
  1. ZOLPIDEM [Suspect]
     Route: 048
  2. TIAPRIDE [Concomitant]

REACTIONS (1)
  - DELIRIUM [None]
